FAERS Safety Report 9056244 (Version 1)
Quarter: 2013Q1

REPORT INFORMATION
  Report Type: Spontaneous
  Country: US (occurrence: US)
  Receive Date: 20130205
  Receipt Date: 20130205
  Transmission Date: 20140127
  Serious: Yes (Other)
  Sender: FDA-Public Use
  Company Number: US-PFIZER INC-2013044289

PATIENT
  Age: 88 Year
  Sex: Female

DRUGS (5)
  1. PROCARDIA [Suspect]
     Dosage: 20 MG, 3X/DAY
  2. ASPIRIN [Suspect]
     Dosage: UNK
  3. INDERAL [Concomitant]
     Dosage: 40 MG, 3X/DAY
  4. NITRO PATCH [Concomitant]
     Dosage: UNK, DAILY
  5. NITRO SL [Concomitant]
     Indication: PAIN
     Dosage: 0.4 MG, AS NEEDED

REACTIONS (3)
  - Haemorrhoidal haemorrhage [Unknown]
  - Hypersensitivity [Unknown]
  - Epistaxis [Unknown]
